FAERS Safety Report 19582248 (Version 1)
Quarter: 2021Q3

REPORT INFORMATION
  Report Type: Spontaneous
  Country: US (occurrence: US)
  Receive Date: 20210719
  Receipt Date: 20210719
  Transmission Date: 20211014
  Serious: No
  Sender: FDA-Public Use
  Company Number: US-GALDERMA-US2021013052

PATIENT

DRUGS (3)
  1. PROACTIV MD ULTRA GENTLE CLEANSER [Concomitant]
     Indication: ACNE
     Dosage: 2 OR MORE TIMES A DAY
     Route: 061
     Dates: start: 20210426, end: 202105
  2. PROACTIV MD ADAPALENE ACNE TREATMENT [Suspect]
     Active Substance: ADAPALENE
     Indication: ACNE
     Dosage: AS DIRECTED
     Route: 061
     Dates: start: 20210426, end: 202105
  3. PROACTIV MD ULTRA HYDRATING MOISTURIZER [Concomitant]
     Indication: ACNE
     Dosage: 2 OR MORE TIMES A DAY
     Route: 061
     Dates: start: 20210426, end: 202105

REACTIONS (5)
  - Hypersensitivity [Recovering/Resolving]
  - Acne [Recovering/Resolving]
  - Urticaria [Recovering/Resolving]
  - Contusion [Recovering/Resolving]
  - Scar [Recovering/Resolving]

NARRATIVE: CASE EVENT DATE: 202105
